FAERS Safety Report 24219421 (Version 2)
Quarter: 2024Q4

REPORT INFORMATION
  Report Type: Spontaneous
  Country: US (occurrence: US)
  Receive Date: 20240816
  Receipt Date: 20241226
  Transmission Date: 20250114
  Serious: Yes (Other)
  Sender: ELI LILLY AND COMPANY
  Company Number: US-ELI_LILLY_AND_COMPANY-US202408007168

PATIENT
  Age: 56 Year
  Sex: Female
  Weight: 87.075 kg

DRUGS (35)
  1. TRULICITY [Suspect]
     Active Substance: DULAGLUTIDE
     Indication: Type 2 diabetes mellitus
     Dosage: UNK UNK, DAILY
     Route: 065
     Dates: start: 20180101, end: 20231003
  2. TRULICITY [Suspect]
     Active Substance: DULAGLUTIDE
     Dosage: UNK UNK, DAILY
     Route: 065
     Dates: end: 20241015
  3. MOUNJARO [Suspect]
     Active Substance: TIRZEPATIDE
     Indication: Product used for unknown indication
     Dosage: UNK UNK, UNKNOWN
     Route: 065
     Dates: start: 202310, end: 202311
  4. OZEMPIC [Suspect]
     Active Substance: SEMAGLUTIDE
     Indication: Type 2 diabetes mellitus
     Dosage: 1 MG, WEEKLY (1/W)
     Route: 065
     Dates: start: 20210101, end: 20210701
  5. OZEMPIC [Suspect]
     Active Substance: SEMAGLUTIDE
     Dosage: 1 MG, WEEKLY (1/W)
     Route: 065
     Dates: end: 202311
  6. ELAVIL [Concomitant]
     Active Substance: AMITRIPTYLINE HYDROCHLORIDE
     Indication: Depression
     Dosage: UNK UNK, UNKNOWN
     Dates: start: 20210119
  7. ASP 81 [Concomitant]
     Indication: Pain
     Dosage: UNK UNK, UNKNOWN
     Dates: start: 20130101
  8. CARVEDILOL [Concomitant]
     Active Substance: CARVEDILOL
     Indication: Hypertension
     Dosage: UNK UNK, UNKNOWN
     Route: 065
     Dates: start: 20210224
  9. CLONIDINE HYDROCHLORIDE [Concomitant]
     Active Substance: CLONIDINE HYDROCHLORIDE
     Indication: Hypertension
     Dosage: UNK UNK, UNKNOWN
     Dates: start: 20220203, end: 20220416
  10. EMPAGLIFLOZIN [Concomitant]
     Active Substance: EMPAGLIFLOZIN
     Indication: Diabetes mellitus
     Dosage: UNK UNK, UNKNOWN
     Route: 065
     Dates: start: 20210101
  11. FLULAVAL QUADRIVALENT [Concomitant]
     Indication: Influenza immunisation
     Dosage: UNK UNK, UNKNOWN
     Route: 065
     Dates: start: 20221020, end: 20221020
  12. FLULAVAL QUADRIVALENT [Concomitant]
     Dosage: UNK UNK, UNKNOWN
     Route: 065
     Dates: start: 20211104, end: 20211104
  13. FLUCONAZOLE [Concomitant]
     Active Substance: FLUCONAZOLE
     Indication: Candida infection
     Dosage: UNK UNK, UNKNOWN
     Dates: start: 20210706, end: 20230420
  14. LASIX [Concomitant]
     Active Substance: FUROSEMIDE
     Indication: Fluid retention
     Dosage: UNK UNK, UNKNOWN
     Route: 065
     Dates: start: 20210419
  15. GABAPENTIN [Concomitant]
     Active Substance: GABAPENTIN
     Indication: Neuropathy peripheral
     Dosage: UNK UNK, UNKNOWN
     Route: 065
     Dates: start: 20230522
  16. KETOROLAC [Concomitant]
     Active Substance: KETOROLAC TROMETHAMINE
     Indication: Eye infection
     Dosage: UNK UNK, UNKNOWN
     Route: 065
     Dates: start: 20220512, end: 20220512
  17. TRESIBA [Concomitant]
     Active Substance: INSULIN DEGLUDEC
     Indication: Diabetes mellitus
     Dosage: UNK UNK, UNKNOWN
     Route: 065
     Dates: start: 20211014, end: 20211114
  18. IMDUR [Concomitant]
     Active Substance: ISOSORBIDE MONONITRATE
     Indication: Chest pain
     Dosage: UNK UNK, UNKNOWN
     Dates: start: 20210117, end: 20220514
  19. HYZAAR [Concomitant]
     Active Substance: HYDROCHLOROTHIAZIDE\LOSARTAN POTASSIUM
     Indication: Blood pressure increased
     Dosage: UNK UNK, UNKNOWN
     Dates: start: 20210113
  20. LEVOFLOXACIN [Concomitant]
     Active Substance: LEVOFLOXACIN
     Indication: Urinary tract infection
     Dosage: UNK UNK, UNKNOWN
     Dates: start: 20231105, end: 20231105
  21. METFORMIN [Concomitant]
     Active Substance: METFORMIN HYDROCHLORIDE
     Indication: Diabetes mellitus
     Dosage: UNK UNK, UNKNOWN
     Route: 065
     Dates: start: 19880101, end: 20230902
  22. MUPIROCIN [Concomitant]
     Active Substance: MUPIROCIN
     Indication: Fungal infection
     Dosage: UNK UNK, UNKNOWN
     Dates: start: 20210521, end: 20210530
  23. NAPROXEN [Concomitant]
     Active Substance: NAPROXEN
     Indication: Pain
     Dosage: UNK UNK, UNKNOWN
     Route: 065
     Dates: start: 20210820, end: 20210830
  24. NITROGLYCERIN [Concomitant]
     Active Substance: NITROGLYCERIN
     Indication: Chest pain
     Dosage: UNK UNK, UNKNOWN
     Dates: start: 20180101, end: 20230101
  25. PANCRELIPASE [Concomitant]
     Active Substance: PANCRELIPASE
     Indication: Product used for unknown indication
     Dosage: UNK UNK, UNKNOWN
     Route: 065
     Dates: start: 20210101
  26. OMEPRAZOLE [Concomitant]
     Active Substance: OMEPRAZOLE
     Indication: Dyspepsia
     Dosage: UNK UNK, UNKNOWN
     Route: 065
     Dates: start: 20220602
  27. PRAVASTATIN [Concomitant]
     Active Substance: PRAVASTATIN
     Indication: Blood cholesterol
     Dosage: UNK UNK, UNKNOWN
     Dates: start: 20210120, end: 20211018
  28. PREDNISOLONE [Concomitant]
     Active Substance: PREDNISOLONE
     Indication: Eye inflammation
     Dosage: UNK UNK, UNKNOWN
     Route: 065
     Dates: start: 20220120, end: 20220512
  29. CRESTOR [Concomitant]
     Active Substance: ROSUVASTATIN CALCIUM
     Indication: Blood cholesterol
     Dosage: UNK UNK, UNKNOWN
     Route: 065
     Dates: start: 20221202
  30. SEMAGLUTIDE [Concomitant]
     Active Substance: SEMAGLUTIDE
     Indication: Diabetes mellitus
     Dosage: UNK UNK, UNKNOWN
     Dates: start: 20210101, end: 20231003
  31. SULFAMETHOXAZOLE [Concomitant]
     Active Substance: SULFAMETHOXAZOLE
     Indication: Gastrointestinal infection
     Dosage: UNK UNK, UNKNOWN
     Route: 065
     Dates: start: 20220204, end: 20221031
  32. TIZANIDINE HYDROCHLORIDE [Concomitant]
     Active Substance: TIZANIDINE HYDROCHLORIDE
     Indication: Muscle relaxant therapy
     Dosage: UNK UNK, UNKNOWN
     Route: 065
     Dates: start: 20210820, end: 20211113
  33. TOUJEO [Concomitant]
     Active Substance: INSULIN GLARGINE
     Indication: Diabetes mellitus
     Dosage: UNK UNK, UNKNOWN
     Route: 065
     Dates: start: 20241015
  34. TYLENOL [Concomitant]
     Active Substance: ACETAMINOPHEN
     Indication: Pain
  35. HUMALOG [Concomitant]
     Active Substance: INSULIN LISPRO
     Indication: Diabetes mellitus
     Dosage: UNK
     Dates: start: 20210101, end: 20230101

REACTIONS (11)
  - Impaired gastric emptying [Not Recovered/Not Resolved]
  - Vomiting [Not Recovered/Not Resolved]
  - Dyspepsia [Not Recovered/Not Resolved]
  - Nausea [Not Recovered/Not Resolved]
  - Constipation [Not Recovered/Not Resolved]
  - Decreased appetite [Not Recovered/Not Resolved]
  - Pancreatitis [Not Recovered/Not Resolved]
  - Diarrhoea [Not Recovered/Not Resolved]
  - Abdominal pain [Not Recovered/Not Resolved]
  - Inappropriate schedule of product administration [Unknown]
  - Overdose [Unknown]

NARRATIVE: CASE EVENT DATE: 20220701
